FAERS Safety Report 19603363 (Version 1)
Quarter: 2021Q3

REPORT INFORMATION
  Report Type: Spontaneous
  Country: JP (occurrence: JP)
  Receive Date: 20210723
  Receipt Date: 20210723
  Transmission Date: 20211014
  Serious: Yes (Other)
  Sender: FDA-Public Use
  Company Number: JP-ASTRAZENECA-2021A630851

PATIENT

DRUGS (4)
  1. IMFINZI [Suspect]
     Active Substance: DURVALUMAB
     Indication: SMALL CELL LUNG CANCER
     Dosage: UNKNOWN DOSE, EVERY THREE WEEKS
     Route: 042
  2. IMFINZI [Suspect]
     Active Substance: DURVALUMAB
     Indication: SMALL CELL LUNG CANCER
     Dosage: UNKNOWN DOSE, EVERY FOUR WEEKS
     Route: 042
  3. ETOPOSIDE. [Concomitant]
     Active Substance: ETOPOSIDE
     Indication: SMALL CELL LUNG CANCER
     Dosage: DOSE UNKNOWN, ON DAY 1, 2, AND 3 OF EACH CYCLE, EVERY THREE WEEKS
  4. OTHER ANTITUMOR AGENTS [Concomitant]
     Active Substance: UNSPECIFIED INGREDIENT
     Indication: SMALL CELL LUNG CANCER
     Dosage: UNKNOWN DOSE, EVERY THREE WEEKS

REACTIONS (3)
  - Condition aggravated [Unknown]
  - Metastases to liver [Unknown]
  - Inappropriate schedule of product administration [Unknown]
